FAERS Safety Report 13887294 (Version 1)
Quarter: 2017Q3

REPORT INFORMATION
  Report Type: Spontaneous
  Country: US (occurrence: US)
  Receive Date: 20170821
  Receipt Date: 20170821
  Transmission Date: 20171127
  Serious: No
  Sender: FDA-Public Use
  Company Number: US-ROCHE-790657

PATIENT
  Sex: Female
  Weight: 95.7 kg

DRUGS (9)
  1. LISINOPRIL. [Concomitant]
     Active Substance: LISINOPRIL
     Dosage: DRUG REPORTED AS LOSINOPRIL
     Route: 048
  2. CALCIUM [Concomitant]
     Active Substance: CALCIUM
     Route: 065
  3. ACTEMRA [Suspect]
     Active Substance: TOCILIZUMAB
     Indication: RHEUMATOID ARTHRITIS
     Dosage: LAST DOSE PRIOR TO SAE: 13 JULY 2011.
     Route: 042
  4. LASIX [Concomitant]
     Active Substance: FUROSEMIDE
     Route: 065
  5. VITAMINS NOS [Concomitant]
     Active Substance: VITAMINS
     Dosage: DRUG REPORTED AS OTC VITAMINS
     Route: 065
  6. NEURONTIN [Concomitant]
     Active Substance: GABAPENTIN
     Dosage: DRUG REPORTED AS NEUROTIN
     Route: 065
  7. VITAMIN D [Concomitant]
     Active Substance: CHOLECALCIFEROL
     Route: 065
  8. THYROXINE [Concomitant]
     Active Substance: LEVOTHYROXINE
     Dosage: DRUG REPORTED AS THROXIN
     Route: 065
  9. PRAVASTATIN. [Concomitant]
     Active Substance: PRAVASTATIN
     Dosage: DRUG REPORTED AS PRADASTATIN
     Route: 048

REACTIONS (2)
  - Back pain [Unknown]
  - Malaise [Unknown]
